FAERS Safety Report 19207450 (Version 2)
Quarter: 2021Q2

REPORT INFORMATION
  Report Type: Spontaneous
  Country: US (occurrence: US)
  Receive Date: 20210503
  Receipt Date: 20210616
  Transmission Date: 20210717
  Serious: Yes (Other)
  Sender: FDA-Public Use
  Company Number: US-ASTRAZENECA-2021A364090

PATIENT
  Sex: Female
  Weight: 49.9 kg

DRUGS (5)
  1. ZONISAMIDE. [Suspect]
     Active Substance: ZONISAMIDE
     Indication: DYSTONIA
     Route: 065
  2. GABAPENTIN. [Suspect]
     Active Substance: GABAPENTIN
     Indication: DYSTONIA
     Route: 065
  3. ANTIBODIES [Concomitant]
  4. BACLOFEN. [Concomitant]
     Active Substance: BACLOFEN
  5. FASENRA [Suspect]
     Active Substance: BENRALIZUMAB
     Indication: ASTHMA
     Route: 058
     Dates: start: 201901

REACTIONS (7)
  - Cerebral disorder [Unknown]
  - Nerve injury [Unknown]
  - Eye disorder [Unknown]
  - Vision blurred [Unknown]
  - Liquid product physical issue [Unknown]
  - Nervous system disorder [Unknown]
  - Adverse drug reaction [Unknown]
